FAERS Safety Report 8085012-1 (Version None)
Quarter: 2012Q1

REPORT INFORMATION
  Report Type: 
  Country: None (occurrence: None)
  Receive Date: 20120128
  Receipt Date: 20110313
  Transmission Date: 20120608
  Serious: No
  Sender: FDA-Public Use
  Company Number: US-ABBOTT-11P-163-0711110-00

PATIENT
  Age: 38 Year
  Sex: Female

DRUGS (5)
  1. CYMBALTA [Concomitant]
     Indication: NERVOUSNESS
  2. HUMIRA [Suspect]
     Indication: RHEUMATOID ARTHRITIS
  3. VICODIN [Concomitant]
     Indication: BACK PAIN
  4. VITAMIN B-12 [Concomitant]
     Indication: PRODUCT USED FOR UNKNOWN INDICATION
     Route: 048
  5. METHOTREXATE [Concomitant]
     Indication: PRODUCT USED FOR UNKNOWN INDICATION
     Dosage: 8 PILLS WEEKLY

REACTIONS (1)
  - MUSCULAR WEAKNESS [None]
